FAERS Safety Report 9522087 (Version 1)
Quarter: 2013Q3

REPORT INFORMATION
  Report Type: Spontaneous
  Country: US (occurrence: None)
  Receive Date: 20130821
  Receipt Date: 20130821
  Transmission Date: 20140515
  Serious: Yes (Other)
  Sender: FDA-Public Use
  Company Number: 2013PROUSA03058

PATIENT
  Age: 62 Year
  Sex: Male
  Weight: 71.7 kg

DRUGS (5)
  1. PROVENGE (SIPULEUCEL-T) SUSPENSION [Suspect]
     Indication: PROSTATE CANCER METASTATIC
     Route: 042
     Dates: start: 20120712, end: 20120712
  2. XGEVA (DENOSUMAB) [Concomitant]
  3. IBUPROFEN (IBUPROFEN) [Concomitant]
  4. DECADRON (DEXAMETHASONE) [Concomitant]
  5. ABIRATERONE (ABIRATERONE ACETATE) [Concomitant]

REACTIONS (7)
  - Asthenia [None]
  - Dysphagia [None]
  - Performance status decreased [None]
  - Confusional state [None]
  - Grand mal convulsion [None]
  - Metastases to central nervous system [None]
  - Coordination abnormal [None]
